FAERS Safety Report 13484984 (Version 2)
Quarter: 2017Q3

REPORT INFORMATION
  Report Type: Report from Study
  Country: None (occurrence: BR)
  Receive Date: 20170425
  Receipt Date: 20170703
  Transmission Date: 20171127
  Serious: Yes (Other)
  Sender: FDA-Public Use
  Company Number: BR-ABBVIE-17P-020-1912109-00

PATIENT
  Sex: Female
  Weight: 60 kg

DRUGS (13)
  1. HUMIRA [Suspect]
     Active Substance: ADALIMUMAB
     Dosage: LOADING DOSE, WEEK 2
     Route: 058
     Dates: start: 201507, end: 201507
  2. MESALAZINE [Concomitant]
     Active Substance: MESALAMINE
     Indication: COLITIS
  3. LABIRIN [Concomitant]
     Active Substance: BETAHISTINE
     Indication: LABYRINTHITIS
     Dosage: 1 OR 2 TABLETS PER DAY
     Route: 048
     Dates: start: 2014
  4. HUMIRA [Suspect]
     Active Substance: ADALIMUMAB
     Dosage: WEEK 3
     Route: 058
     Dates: start: 2015
  5. HUMIRA [Suspect]
     Active Substance: ADALIMUMAB
     Route: 058
     Dates: start: 20170310
  6. VARICOSS [Concomitant]
     Indication: BLOOD DISORDER
     Dosage: 2 OR 3 TABLETS PER DAY
     Route: 048
     Dates: start: 2015
  7. RIVOTRIL [Concomitant]
     Active Substance: CLONAZEPAM
     Indication: SLEEP DISORDER THERAPY
     Route: 048
     Dates: start: 1980
  8. HUMIRA [Suspect]
     Active Substance: ADALIMUMAB
     Indication: CROHN^S DISEASE
     Dosage: LOADING DOSE,WEEK 0
     Route: 058
     Dates: start: 20150709, end: 20150709
  9. MESALAZINE [Concomitant]
     Active Substance: MESALAMINE
     Indication: CROHN^S DISEASE
     Route: 048
     Dates: start: 20020101
  10. VICOG [Concomitant]
     Active Substance: VINPOCETINE
     Indication: MEMORY IMPAIRMENT
     Route: 048
     Dates: start: 2015
  11. OMEGA 3 [Concomitant]
     Active Substance: OMEGA-3 FATTY ACIDS
     Indication: OSTEOARTHRITIS
     Route: 048
     Dates: start: 201612
  12. VARICOSS [Concomitant]
     Indication: PAIN IN EXTREMITY
  13. DORALGINA [Concomitant]
     Indication: HEADACHE
     Route: 048
     Dates: start: 201609

REACTIONS (2)
  - Cataract operation complication [Not Recovered/Not Resolved]
  - Vision blurred [Unknown]

NARRATIVE: CASE EVENT DATE: 2016
